FAERS Safety Report 12439601 (Version 1)
Quarter: 2016Q2

REPORT INFORMATION
  Report Type: Spontaneous
  Country: US (occurrence: US)
  Receive Date: 20160606
  Receipt Date: 20160606
  Transmission Date: 20160815
  Serious: No
  Sender: FDA-Public Use
  Company Number: US-TEVA-663441USA

PATIENT
  Age: 58 Year
  Sex: Female

DRUGS (16)
  1. COPAXONE [Suspect]
     Active Substance: GLATIRAMER ACETATE
     Indication: MULTIPLE SCLEROSIS
     Route: 058
     Dates: start: 20150819
  2. PRILOCAINE [Concomitant]
     Active Substance: PRILOCAINE
  3. CLONIDINE. [Concomitant]
     Active Substance: CLONIDINE
  4. CARVIDOLOL [Concomitant]
  5. MELOXICAM. [Concomitant]
     Active Substance: MELOXICAM
  6. MICARDIS [Concomitant]
     Active Substance: TELMISARTAN
  7. IRBESARTAN. [Concomitant]
     Active Substance: IRBESARTAN
  8. NALTREXONE [Concomitant]
     Active Substance: NALTREXONE
  9. MORPHINE [Concomitant]
     Active Substance: MORPHINE
  10. SIMVASTATIN. [Concomitant]
     Active Substance: SIMVASTATIN
  11. VITAMIN D [Concomitant]
     Active Substance: CHOLECALCIFEROL
  12. COMPOUNDED TOPIRAMATE [Concomitant]
  13. WP THYROID [Concomitant]
  14. LIDOCAINE. [Concomitant]
     Active Substance: LIDOCAINE
  15. RYNATAN [Concomitant]
     Active Substance: CHLORPHENIRAMINE TANNATE\PHENYLEPHRINE TANNATE
  16. HYDRALAZINE [Concomitant]
     Active Substance: HYDRALAZINE HYDROCHLORIDE

REACTIONS (3)
  - Injection site pruritus [Unknown]
  - Injection site swelling [Unknown]
  - Fatigue [Unknown]

NARRATIVE: CASE EVENT DATE: 201508
